FAERS Safety Report 4442067-0 (Version None)
Quarter: 2004Q3

REPORT INFORMATION
  Report Type: 
  Country: None (occurrence: None)
  Receive Date: 20040903
  Receipt Date: 20040428
  Transmission Date: 20050211
  Serious: No
  Sender: FDA-Public Use
  Company Number: 2004UW08683

PATIENT
  Age: 65 Year
  Sex: Female
  Weight: 64.8644 kg

DRUGS (6)
  1. CRESTOR [Suspect]
     Dosage: 10 MG DAILY PO
     Route: 048
     Dates: start: 20040316, end: 20040324
  2. GEMFIBROZIL [Concomitant]
  3. VITAMIN B COMPLEX CAP [Concomitant]
  4. PRILOSEC [Concomitant]
  5. LEVOTHYROXINE SODIUM [Concomitant]
  6. CALCIUM [Concomitant]

REACTIONS (2)
  - HEPATOCELLULAR DAMAGE [None]
  - RHABDOMYOLYSIS [None]
